FAERS Safety Report 7551686-4 (Version None)
Quarter: 2011Q2

REPORT INFORMATION
  Report Type: 
  Country: None (occurrence: None)
  Receive Date: 20110616
  Receipt Date: 20110613
  Transmission Date: 20111010
  Serious: Yes (Hospitalization)
  Sender: FDA-Public Use
  Company Number: US-B.I. PHARMACEUTICALS,INC./RIDGEFIELD-2011-BP-04975BP

PATIENT
  Age: 73 Year
  Sex: Male

DRUGS (1)
  1. PRADAXA [Suspect]
     Indication: ATRIAL FIBRILLATION
     Dosage: 300 MG
     Route: 048
     Dates: end: 20110101

REACTIONS (4)
  - LIP HAEMORRHAGE [None]
  - ECCHYMOSIS [None]
  - TONGUE HAEMORRHAGE [None]
  - GINGIVAL BLEEDING [None]
